FAERS Safety Report 8362922-9 (Version None)
Quarter: 2012Q2

REPORT INFORMATION
  Report Type: 
  Country: None (occurrence: None)
  Receive Date: 20120516
  Receipt Date: 20120507
  Transmission Date: 20120825
  Serious: Yes (Hospitalization)
  Sender: FDA-Public Use
  Company Number: FR-SANOFI-AVENTIS-2012SA032388

PATIENT
  Age: 87 Year
  Sex: Female

DRUGS (7)
  1. DIGOXIN [Suspect]
     Indication: ATRIAL FIBRILLATION
     Route: 048
     Dates: end: 20120417
  2. LYRICA [Suspect]
     Route: 048
  3. LEVOTHYROXINE SODIUM [Suspect]
     Indication: HYPOTHYROIDISM
     Route: 048
  4. NEXIUM [Suspect]
     Route: 048
  5. SINTROM [Suspect]
     Indication: ATRIAL FIBRILLATION
     Dosage: DOSE:0.25 UNIT(S)
     Route: 048
  6. ESIDRIX [Suspect]
     Route: 048
  7. LASIX [Suspect]
     Route: 048

REACTIONS (4)
  - CEREBRAL HYPOPERFUSION [None]
  - DEPRESSED LEVEL OF CONSCIOUSNESS [None]
  - BRADYCARDIA [None]
  - DECREASED APPETITE [None]
